FAERS Safety Report 21216688 (Version 1)
Quarter: 2022Q3

REPORT INFORMATION
  Report Type: Spontaneous
  Country: US (occurrence: None)
  Receive Date: 20220816
  Receipt Date: 20220816
  Transmission Date: 20221026
  Serious: Yes (Other)
  Sender: FDA-Public Use
  Company Number: 2022A281507

PATIENT
  Sex: Female
  Weight: 59 kg

DRUGS (3)
  1. BRILINTA [Suspect]
     Active Substance: TICAGRELOR
     Indication: Myocardial infarction
     Route: 048
     Dates: start: 202206
  2. BRILINTA [Suspect]
     Active Substance: TICAGRELOR
     Indication: Stent placement
     Route: 048
     Dates: start: 202206
  3. ATORVASTATIN [Concomitant]
     Active Substance: ATORVASTATIN
     Route: 048

REACTIONS (23)
  - Suicidal ideation [Unknown]
  - Adverse event [Unknown]
  - Skin irritation [Unknown]
  - Restless legs syndrome [Unknown]
  - Oropharyngeal discomfort [Unknown]
  - Pain [Unknown]
  - Depressed mood [Unknown]
  - Muscle spasms [Unknown]
  - Gait disturbance [Unknown]
  - Chest pain [Unknown]
  - Headache [Unknown]
  - Sleep disorder [Unknown]
  - Fatigue [Unknown]
  - Arthropathy [Unknown]
  - Skin discolouration [Unknown]
  - Back pain [Unknown]
  - Oesophageal pain [Unknown]
  - Angina pectoris [Unknown]
  - Swelling [Unknown]
  - Nasal pruritus [Unknown]
  - Diarrhoea [Unknown]
  - Pruritus [Unknown]
  - Drug ineffective [Unknown]
